FAERS Safety Report 9310123 (Version 1)
Quarter: 2013Q2

REPORT INFORMATION
  Report Type: Spontaneous
  Country: US (occurrence: US)
  Receive Date: 20130527
  Receipt Date: 20130527
  Transmission Date: 20140414
  Serious: No
  Sender: FDA-Public Use
  Company Number: US-BIOGENIDEC-2013BI047251

PATIENT
  Sex: Female

DRUGS (2)
  1. TYSABRI [Suspect]
     Indication: MULTIPLE SCLEROSIS
     Route: 042
     Dates: start: 20101105, end: 20130408
  2. PREDNISONE [Concomitant]

REACTIONS (3)
  - Balance disorder [Unknown]
  - Mobility decreased [Unknown]
  - Multiple sclerosis relapse [Recovered/Resolved]
